FAERS Safety Report 4993682-7 (Version None)
Quarter: 2006Q2

REPORT INFORMATION
  Report Type: 
  Country: None (occurrence: None)
  Receive Date: 20060503
  Receipt Date: 20060503
  Transmission Date: 20061013
  Serious: Yes (Hospitalization)
  Sender: FDA-Public Use
  Company Number: None

PATIENT
  Age: 62 Year
  Sex: Male

DRUGS (11)
  1. ADENOSINE [Suspect]
     Indication: CARDIAC STRESS TEST
     Dosage: 140 MCG/KG/MIN FOR 2.5 MIN
     Dates: start: 20060228, end: 20060228
  2. ADVAIR DISKUS 100/50 [Concomitant]
  3. ALBUTEROL 90/IPRATROP 18MCG [Concomitant]
  4. ALBUTEROL SO4 [Concomitant]
  5. CHLORPHENIRAMINE MALEATE [Concomitant]
  6. FOSINOPRIL NA [Concomitant]
  7. GATIFLOXACIN [Concomitant]
  8. HCTZ 25/TRIAMTERENE 37.5 MG [Concomitant]
  9. METOPROLOL TARTRATE [Concomitant]
  10. OMEPRAZOLE [Concomitant]
  11. POTASSIUM CHLORIDE 10MEQ [Concomitant]

REACTIONS (4)
  - ACUTE RESPIRATORY FAILURE [None]
  - BRONCHOSPASM [None]
  - DEPRESSED LEVEL OF CONSCIOUSNESS [None]
  - HYPERHIDROSIS [None]
